FAERS Safety Report 9581225 (Version 1)
Quarter: 2013Q4

REPORT INFORMATION
  Report Type: Spontaneous
  Country: FR (occurrence: FR)
  Receive Date: 20131002
  Receipt Date: 20131002
  Transmission Date: 20140711
  Serious: Yes (Life-Threatening, Hospitalization)
  Sender: FDA-Public Use
  Company Number: FR-B.I. PHARMACEUTICALS,INC./RIDGEFIELD-2013-FF-02404FF

PATIENT
  Age: 86 Year
  Sex: Male

DRUGS (7)
  1. PRADAXA [Suspect]
     Indication: ATRIAL FIBRILLATION
  2. COVERSYL [Concomitant]
  3. LASILIX [Concomitant]
  4. INSPRA [Concomitant]
  5. PERMIXON [Concomitant]
  6. ALLOPURINOL [Concomitant]
  7. ORMANDYL [Concomitant]

REACTIONS (9)
  - Fall [Unknown]
  - Injury [Unknown]
  - Skull fracture [Unknown]
  - Subdural haematoma [Unknown]
  - Subarachnoid haemorrhage [Unknown]
  - Pneumocephalus [Unknown]
  - Concussion [Unknown]
  - Vertigo [Unknown]
  - Vomiting [Unknown]
